FAERS Safety Report 23448684 (Version 3)
Quarter: 2024Q4

REPORT INFORMATION
  Report Type: Spontaneous
  Country: TW (occurrence: TW)
  Receive Date: 20240127
  Receipt Date: 20241111
  Transmission Date: 20250114
  Serious: Yes (Hospitalization, Other)
  Sender: ACCORD
  Company Number: TW-Accord-402408

PATIENT
  Age: 62 Year
  Sex: Male
  Weight: 55.0 kg

DRUGS (23)
  1. CARBOPLATIN [Suspect]
     Active Substance: CARBOPLATIN
     Indication: Squamous cell carcinoma of head and neck
     Dosage: 5 AUC, 1Q3W
     Route: 042
     Dates: start: 20230918, end: 20231030
  2. FLUOROURACIL [Suspect]
     Active Substance: FLUOROURACIL
     Indication: Squamous cell carcinoma of head and neck
     Dosage: 1Q3W
     Route: 042
     Dates: start: 20230918, end: 20230922
  3. PEMBROLIZUMAB [Concomitant]
     Active Substance: PEMBROLIZUMAB
     Indication: Squamous cell carcinoma of head and neck
     Dosage: 200 MILLIGRAM, 1Q3W
     Route: 042
     Dates: start: 20230918, end: 20231030
  4. IMIPRAMINE [Concomitant]
     Active Substance: IMIPRAMINE
     Dates: start: 20230913, end: 20230926
  5. CELECOXIB [Concomitant]
     Active Substance: CELECOXIB
     Dates: start: 20231113, end: 20231127
  6. TRANEXAMIC ACID [Concomitant]
     Active Substance: TRANEXAMIC ACID
     Dates: start: 20230828, end: 20230926
  7. PARACETAMOL W/TRAMADOL HYDROCHLORID [Concomitant]
     Dates: start: 20230913, end: 20230926
  8. PREDNISOLONE [Concomitant]
     Active Substance: PREDNISOLONE
     Dates: start: 20230926, end: 20230926
  9. PALONOSETRON [Concomitant]
     Active Substance: PALONOSETRON
     Dates: start: 20231010, end: 20231030
  10. DEXAMETHASONE [Concomitant]
     Active Substance: DEXAMETHASONE
     Dates: start: 20231010, end: 20231010
  11. APREPITANT [Concomitant]
     Active Substance: APREPITANT
     Dates: start: 20231010, end: 20231101
  12. ACETAMINOPHEN [Concomitant]
     Active Substance: ACETAMINOPHEN
     Dates: start: 20230924, end: 20231201
  13. DIETARY SUPPLEMENT\HERBALS\MILK THISTLE [Concomitant]
     Active Substance: MILK THISTLE
     Dates: start: 20231003, end: 20231017
  14. ACETYLCYSTEINE [Concomitant]
     Active Substance: ACETYLCYSTEINE
     Dates: start: 20231009, end: 20231015
  15. CIPROFLOXACIN [Concomitant]
     Active Substance: CIPROFLOXACIN
     Dates: start: 20230926, end: 20231003
  16. AMOXICILLIN\CLAVULANATE POTASSIUM [Concomitant]
     Active Substance: AMOXICILLIN\CLAVULANATE POTASSIUM
     Dates: start: 20230924, end: 20230927
  17. NYSTATIN [Concomitant]
     Active Substance: NYSTATIN
     Dates: start: 20231002, end: 20231119
  18. LOPERAMIDE [Concomitant]
     Active Substance: LOPERAMIDE
     Dates: start: 20230927, end: 20231031
  19. DESLORATADINE [Concomitant]
     Active Substance: DESLORATADINE
     Dates: start: 20230926, end: 20231127
  20. LIDOCAINE [Concomitant]
     Active Substance: LIDOCAINE
     Dosage: 2 PERCENT
     Dates: start: 20231017, end: 20231026
  21. BROMHEXINE [Concomitant]
     Active Substance: BROMHEXINE
     Dates: start: 20231017, end: 20231031
  22. FLUOROURACIL [Suspect]
     Active Substance: FLUOROURACIL
     Indication: Squamous cell carcinoma of head and neck
     Dosage: 1Q3W
     Route: 042
     Dates: start: 20231030, end: 20231101
  23. FLUOROURACIL [Suspect]
     Active Substance: FLUOROURACIL
     Indication: Squamous cell carcinoma of head and neck
     Dosage: 1Q3W
     Route: 042
     Dates: start: 20231010, end: 20231014

REACTIONS (1)
  - Pneumonia [Recovered/Resolved]

NARRATIVE: CASE EVENT DATE: 20231024
